FAERS Safety Report 7672163-6 (Version None)
Quarter: 2011Q3

REPORT INFORMATION
  Report Type: 
  Country: None (occurrence: None)
  Receive Date: 20110809
  Receipt Date: 20110804
  Transmission Date: 20111222
  Serious: Yes (Death)
  Sender: FDA-Public Use
  Company Number: PHEH2011US00685

PATIENT
  Age: 55 Year
  Sex: Male

DRUGS (3)
  1. VICODIN [Concomitant]
  2. ZOMETA [Suspect]
     Dosage: UNK
  3. IBUPROFEN [Concomitant]

REACTIONS (1)
  - DEATH [None]
